FAERS Safety Report 7311179-6 (Version None)
Quarter: 2011Q1

REPORT INFORMATION
  Report Type: 
  Country: None (occurrence: None)
  Receive Date: 20110210
  Receipt Date: 20110120
  Transmission Date: 20110831
  Serious: Yes (Death)
  Sender: FDA-Public Use
  Company Number: AE11-016-7

PATIENT
  Age: 41 Year
  Sex: Female

DRUGS (7)
  1. PREDNISONE [Suspect]
  2. LORCET (HYDROCODONE/ACETAMINOPHEN) [Suspect]
  3. AMITRIPTYLINE [Suspect]
  4. TRAZODONE [Suspect]
  5. FLUOXETINE [Suspect]
  6. CLONAZEPAM [Suspect]
  7. DIPHENHYDRAMINE [Suspect]

REACTIONS (4)
  - MULTIPLE DRUG OVERDOSE INTENTIONAL [None]
  - CARDIAC ARREST [None]
  - RESPIRATORY ARREST [None]
  - COMPLETED SUICIDE [None]
